FAERS Safety Report 7099090-X (Version None)
Quarter: 2010Q4

REPORT INFORMATION
  Report Type: 
  Country: None (occurrence: None)
  Receive Date: 20101112
  Receipt Date: 20101110
  Transmission Date: 20110411
  Serious: Yes (Other)
  Sender: FDA-Public Use
  Company Number: A0874005A

PATIENT
  Sex: Female

DRUGS (6)
  1. FLONASE [Suspect]
     Indication: MULTIPLE ALLERGIES
     Route: 045
     Dates: start: 20030101
  2. NASONEX [Suspect]
     Indication: MULTIPLE ALLERGIES
     Route: 045
  3. PREDNISONE [Suspect]
     Route: 065
  4. PULMICORT [Concomitant]
     Indication: ASTHMA
  5. ALBUTEROL [Concomitant]
     Indication: ASTHMA
     Route: 055
  6. ULTIVA [Concomitant]

REACTIONS (6)
  - ANOSMIA [None]
  - ILL-DEFINED DISORDER [None]
  - NASAL SEPTAL OPERATION [None]
  - PRODUCT QUALITY ISSUE [None]
  - REBOUND EFFECT [None]
  - SINUS DISORDER [None]
